FAERS Safety Report 10077131 (Version 1)
Quarter: 2014Q2

REPORT INFORMATION
  Report Type: Spontaneous
  Country: DK (occurrence: DK)
  Receive Date: 20140414
  Receipt Date: 20140414
  Transmission Date: 20141212
  Serious: Yes (Hospitalization)
  Sender: FDA-Public Use
  Company Number: DK-WATSON-2014-07556

PATIENT
  Sex: Male

DRUGS (6)
  1. STESOLID [Suspect]
     Indication: PRODUCT USED FOR UNKNOWN INDICATION
     Dosage: UNK
     Route: 065
     Dates: end: 199406
  2. LEXOTAN [Suspect]
     Indication: PRODUCT USED FOR UNKNOWN INDICATION
     Dosage: UNK
     Route: 048
     Dates: end: 199406
  3. ALPROX [Suspect]
     Indication: PRODUCT USED FOR UNKNOWN INDICATION
     Dosage: UNK
     Route: 048
     Dates: start: 199406
  4. BROMAM [Suspect]
     Indication: PRODUCT USED FOR UNKNOWN INDICATION
     Dosage: UNK
     Route: 048
  5. IMOVANE [Suspect]
     Indication: PRODUCT USED FOR UNKNOWN INDICATION
     Dosage: UNK
     Route: 048
     Dates: start: 199406
  6. KETOGAN [Concomitant]
     Indication: PAIN
     Dosage: UNK
     Route: 065
     Dates: end: 2000

REACTIONS (5)
  - Drug withdrawal syndrome [Unknown]
  - General physical health deterioration [Unknown]
  - Muscle injury [Unknown]
  - Alcoholic [Unknown]
  - Drug abuse [Unknown]
